FAERS Safety Report 4914927-5 (Version None)
Quarter: 2006Q1

REPORT INFORMATION
  Report Type: 
  Country: None (occurrence: None)
  Receive Date: 20060115
  Receipt Date: 20060115
  Transmission Date: 20060701
  Serious: Yes (Hospitalization)
  Sender: FDA-Public Use
  Company Number: None

PATIENT
  Sex: Female
  Weight: 52.1637 kg

DRUGS (2)
  1. CEFZIL [Suspect]
     Dosage: PO [PRIOR TO ADMISSION]
     Route: 048
  2. MICONAZOLE [Concomitant]

REACTIONS (3)
  - FEELING HOT [None]
  - RASH [None]
  - THROAT TIGHTNESS [None]
